FAERS Safety Report 9201586 (Version 1)
Quarter: 2013Q2

REPORT INFORMATION
  Report Type: Spontaneous
  Country: US (occurrence: US)
  Receive Date: 20130401
  Receipt Date: 20130401
  Transmission Date: 20140414
  Serious: Yes (Other)
  Sender: FDA-Public Use
  Company Number: US-SANOFI-AVENTIS-2013SA032780

PATIENT
  Sex: Male
  Weight: 79.37 kg

DRUGS (1)
  1. AMBIEN [Suspect]
     Indication: PRODUCT USED FOR UNKNOWN INDICATION
     Route: 048

REACTIONS (4)
  - Road traffic accident [Unknown]
  - Impaired driving ability [Unknown]
  - Amnesia [Unknown]
  - Wrong drug administered [Unknown]
